FAERS Safety Report 15833545 (Version 1)
Quarter: 2019Q1

REPORT INFORMATION
  Report Type: Spontaneous
  Country: US (occurrence: US)
  Receive Date: 20190116
  Receipt Date: 20190116
  Transmission Date: 20190417
  Serious: Yes (Hospitalization)
  Sender: FDA-Public Use
  Company Number: None

PATIENT
  Age: 13 Year
  Sex: Male
  Weight: 68 kg

DRUGS (3)
  1. SODIUM CHLORIDE 0.9% VIAL [Concomitant]
  2. VINCRISTINE [Concomitant]
     Active Substance: VINCRISTINE
  3. METHOTREXATE (PF) INJECTION [Suspect]
     Active Substance: METHOTREXATE SODIUM
     Indication: CHEMOTHERAPY
     Dosage: ?          OTHER FREQUENCY:ONCE;?
     Route: 037

REACTIONS (5)
  - Paraesthesia [None]
  - Muscular weakness [None]
  - Dysarthria [None]
  - Hypoaesthesia [None]
  - Mental status changes [None]

NARRATIVE: CASE EVENT DATE: 20190110
